FAERS Safety Report 4830464-0 (Version None)
Quarter: 2005Q4

REPORT INFORMATION
  Report Type: 
  Country: None (occurrence: None)
  Receive Date: 20051117
  Receipt Date: 20030206
  Transmission Date: 20060501
  Serious: Yes (Life-Threatening)
  Sender: FDA-Public Use
  Company Number: JP-ROCHE-331063

PATIENT
  Age: 88 Year
  Sex: Female
  Weight: 37 kg

DRUGS (10)
  1. TAMIFLU [Suspect]
     Route: 048
     Dates: start: 20030130, end: 20030131
  2. CLARITHROMYCIN [Concomitant]
     Route: 048
     Dates: start: 20030130, end: 20030131
  3. CALONAL [Concomitant]
     Route: 048
     Dates: start: 20030130, end: 20030131
  4. HUSTAZOL [Concomitant]
     Indication: COUGH
     Route: 048
     Dates: start: 20030130, end: 20030131
  5. CORINAEL-L [Concomitant]
     Indication: HYPERTENSION
     Route: 048
     Dates: start: 20010514, end: 20030131
  6. SELOKEN [Concomitant]
     Indication: HYPERTENSION
     Route: 048
     Dates: start: 20010514, end: 20030131
  7. D-ALFA [Concomitant]
     Indication: OSTEOPOROSIS
     Route: 048
     Dates: start: 20010514, end: 20030131
  8. CEREKINON [Concomitant]
     Indication: FLATULENCE
     Route: 048
     Dates: start: 20010514, end: 20030131
  9. GEFANIL [Concomitant]
     Route: 048
     Dates: start: 20010514, end: 20030131
  10. FAMOTIDINE [Concomitant]
     Route: 048
     Dates: start: 20010514, end: 20030131

REACTIONS (28)
  - ACIDOSIS [None]
  - ALANINE AMINOTRANSFERASE INCREASED [None]
  - ASPARTATE AMINOTRANSFERASE INCREASED [None]
  - ATELECTASIS [None]
  - ATRIAL FIBRILLATION [None]
  - BLOOD CREATININE INCREASED [None]
  - BLOOD LACTATE DEHYDROGENASE INCREASED [None]
  - BLOOD SODIUM INCREASED [None]
  - BLOOD UREA INCREASED [None]
  - C-REACTIVE PROTEIN INCREASED [None]
  - CARDIAC TAMPONADE [None]
  - CEREBRAL INFARCTION [None]
  - DECREASED APPETITE [None]
  - DEHYDRATION [None]
  - DEPRESSED LEVEL OF CONSCIOUSNESS [None]
  - DIFFICULTY IN WALKING [None]
  - HYPERCAPNIA [None]
  - HYPOXIA [None]
  - LUNG DISORDER [None]
  - OVERDOSE [None]
  - PERICARDIAL EFFUSION [None]
  - PLATELET COUNT DECREASED [None]
  - PLEURAL EFFUSION [None]
  - PNEUMONIA INFLUENZAL [None]
  - RED BLOOD CELL COUNT DECREASED [None]
  - RENAL DISORDER [None]
  - SPEECH DISORDER [None]
  - SUPRAVENTRICULAR TACHYCARDIA [None]
